FAERS Safety Report 23940834 (Version 1)
Quarter: 2024Q2

REPORT INFORMATION
  Report Type: Spontaneous
  Country: US (occurrence: US)
  Receive Date: 20240605
  Receipt Date: 20240605
  Transmission Date: 20240716
  Serious: Yes (Hospitalization, Other)
  Sender: FDA-Public Use
  Company Number: US-GRAVITIPHARMA-GRA-2405-US-LIT-0159

PATIENT
  Age: 64 Year
  Sex: Male

DRUGS (3)
  1. TRAMADOL HYDROCHLORIDE [Suspect]
     Active Substance: TRAMADOL HYDROCHLORIDE
     Indication: Product used for unknown indication
  2. VENLAFAXINE [Suspect]
     Active Substance: VENLAFAXINE HYDROCHLORIDE
     Indication: Product used for unknown indication
  3. DIPHENHYDRAMINE HYDROCHLORIDE\NAPROXEN SODIUM [Suspect]
     Active Substance: DIPHENHYDRAMINE HYDROCHLORIDE\NAPROXEN SODIUM
     Indication: Product used for unknown indication

REACTIONS (2)
  - Serotonin syndrome [Recovering/Resolving]
  - Intentional overdose [Unknown]
